FAERS Safety Report 7173045-9 (Version None)
Quarter: 2010Q4

REPORT INFORMATION
  Report Type: 
  Country: None (occurrence: None)
  Receive Date: 20101219
  Receipt Date: 20100218
  Transmission Date: 20110411
  Serious: No
  Sender: FDA-Public Use
  Company Number: US-AMGEN-KDL393728

PATIENT

DRUGS (7)
  1. ENBREL [Suspect]
     Indication: PRODUCT USED FOR UNKNOWN INDICATION
     Dosage: 50 MG, QWK
     Route: 058
  2. ENALAPRIL [Concomitant]
  3. CITALOPRAM [Concomitant]
  4. OMEPRAZOLE [Concomitant]
  5. ACETAMINOPHEN AND HYDROCODONE BITARTRATE [Concomitant]
  6. ALBUTEROL INHALER [Concomitant]
  7. ACETAMINOPHEN [Concomitant]

REACTIONS (4)
  - BLISTER [None]
  - RASH [None]
  - STOMATITIS [None]
  - WHEEZING [None]
